FAERS Safety Report 4470327-6 (Version None)
Quarter: 2004Q3

REPORT INFORMATION
  Report Type: 
  Country: None (occurrence: None)
  Receive Date: 20040910
  Receipt Date: 20040701
  Transmission Date: 20050211
  Serious: No
  Sender: FDA-Public Use
  Company Number: 2004-00154

PATIENT
  Age: 53 Year
  Sex: Female

DRUGS (3)
  1. VELCADE [Suspect]
     Indication: MULTIPLE MYELOMA
     Dosage: 3.00 MG, IV BOLUS
     Route: 040
     Dates: start: 20040629, end: 20040629
  2. DEXAMETHASONE [Suspect]
     Indication: MULTIPLE MYELOMA
     Dosage: 20.00  MG, INTRAVENOUS
     Route: 042
     Dates: start: 20040629, end: 20040629
  3. GLUCOVANCE (METFORMIN HYDROCHLORIDE, GLIBENCLAMIDE) [Concomitant]

REACTIONS (1)
  - HYPERGLYCAEMIA [None]
